FAERS Safety Report 23053425 (Version 1)
Quarter: 2023Q4

REPORT INFORMATION
  Report Type: Spontaneous
  Country: DE (occurrence: DE)
  Receive Date: 20231011
  Receipt Date: 20231011
  Transmission Date: 20240110
  Serious: Yes (Hospitalization)
  Sender: FDA-Public Use
  Company Number: None

PATIENT
  Sex: Female

DRUGS (1)
  1. SCOPOLAMINE [Suspect]
     Active Substance: SCOPOLAMINE
     Indication: Motion sickness
     Dosage: AT AN UNSPECIFIED DOSE AND FREQUENCY, PHARMACEUTICAL DOSE FORM TERMID - MEDICATED PLASTER
     Route: 061
     Dates: end: 20230928

REACTIONS (4)
  - Fatigue [Not Recovered/Not Resolved]
  - Vomiting [Unknown]
  - Fatigue [Not Recovered/Not Resolved]
  - Malaise [Not Recovered/Not Resolved]

NARRATIVE: CASE EVENT DATE: 20230929
